FAERS Safety Report 6649650-2 (Version None)
Quarter: 2010Q1

REPORT INFORMATION
  Report Type: 
  Country: None (occurrence: None)
  Receive Date: 20100324
  Receipt Date: 20091114
  Transmission Date: 20100710
  Serious: No
  Sender: FDA-Public Use
  Company Number: US-AMGEN-KDL374581

PATIENT
  Sex: Female

DRUGS (7)
  1. NEULASTA [Suspect]
     Indication: CHEMOTHERAPY
     Dates: start: 20091112
  2. TAXOL [Concomitant]
  3. CARBOPLATIN [Concomitant]
  4. UNSPECIFIED MEDICATION [Concomitant]
  5. UNSPECIFIED STEROIDS [Concomitant]
  6. ZANTAC [Concomitant]
  7. BENADRYL [Concomitant]

REACTIONS (2)
  - BACK PAIN [None]
  - CONSTIPATION [None]
